FAERS Safety Report 7423744-6 (Version None)
Quarter: 2011Q2

REPORT INFORMATION
  Report Type: 
  Country: None (occurrence: None)
  Receive Date: 20110407
  Receipt Date: 20110325
  Transmission Date: 20111010
  Serious: Yes (Hospitalization, Other)
  Sender: FDA-Public Use
  Company Number: ACO_21621_2011

PATIENT
  Age: 67 Year
  Sex: Male

DRUGS (11)
  1. DIOVAN [Concomitant]
  2. AMPYRA [Suspect]
     Indication: PRODUCT USED FOR UNKNOWN INDICATION
     Dates: start: 20101001, end: 20101201
  3. WELLBUTRIN /007005032 (BUPROPION HYDROCHLORIDE) [Concomitant]
  4. PRAVACHOL [Concomitant]
  5. MULTIVITAMIN /00831701/ (VITAMINS NOS) [Concomitant]
  6. ZANAFLEX [Suspect]
     Indication: PRODUCT USED FOR UNKNOWN INDICATION
  7. AVONEX [Concomitant]
  8. BACLOFEN [Concomitant]
  9. TOPROL-XL [Concomitant]
  10. CALTRATE /00108001/ (CACLIUM CARBONATE) [Concomitant]
  11. ASPIRIN (ACETYLOSALICYLIC ACID) [Concomitant]

REACTIONS (13)
  - CONVULSION [None]
  - SLEEP DISORDER [None]
  - STARING [None]
  - URINARY TRACT INFECTION [None]
  - PETIT MAL EPILEPSY [None]
  - RENAL IMPAIRMENT [None]
  - GRIMACING [None]
  - DISORIENTATION [None]
  - CONFUSIONAL STATE [None]
  - OVERDOSE [None]
  - INAPPROPRIATE SCHEDULE OF DRUG ADMINISTRATION [None]
  - THERAPEUTIC RESPONSE UNEXPECTED [None]
  - DEPRESSION [None]
